FAERS Safety Report 7547426-5 (Version None)
Quarter: 2011Q2

REPORT INFORMATION
  Report Type: 
  Country: None (occurrence: None)
  Receive Date: 20110614
  Receipt Date: 20110126
  Transmission Date: 20111010
  Serious: Yes (Hospitalization)
  Sender: FDA-Public Use
  Company Number: US-BAYER-201024511NA

PATIENT
  Age: 24 Year
  Sex: Female

DRUGS (21)
  1. DEPAKOTE [Concomitant]
     Indication: MIGRAINE
     Dates: start: 20050101, end: 20080615
  2. PRILOSEC [Concomitant]
  3. NEXIUM [Concomitant]
  4. PROTONIX [Concomitant]
     Indication: ABDOMINAL PAIN UPPER
     Dosage: UNK
     Route: 048
     Dates: start: 20071017
  5. TOPAMAX [Concomitant]
     Indication: MIGRAINE
     Dates: start: 20050101, end: 20080615
  6. ELMIRON [Concomitant]
     Indication: CYSTITIS INTERSTITIAL
     Dates: start: 20020101
  7. DRUGS FOR FUNCTIONAL GASTROINTEST. DISORDERS [Concomitant]
  8. VIVELLE-DOT [Concomitant]
  9. LEVONORGESTREL + ETHINYL ESTRADIOL [Concomitant]
     Dosage: UNK
     Route: 048
     Dates: start: 20061001, end: 20080101
  10. ALIMENTARY TRACT AND METABOLISM [Concomitant]
  11. OXYCET [Concomitant]
  12. CELEXA [Concomitant]
  13. WELLBUTRIN [Concomitant]
     Indication: ANXIETY
     Dates: start: 20050101, end: 20080615
  14. PERCOCET [Concomitant]
  15. UNCODEABLE ^UNCLASSIFIABLE^ [Concomitant]
  16. ACIPHEX [Concomitant]
     Indication: GASTROOESOPHAGEAL REFLUX DISEASE
     Dosage: UNK
     Route: 048
     Dates: start: 20070125
  17. IBUPROFEN [Concomitant]
  18. PHENERGAN HCL [Concomitant]
  19. YASMIN [Suspect]
     Indication: CONTRACEPTION
     Route: 048
     Dates: start: 20060101, end: 20091115
  20. PEPCID [Concomitant]
  21. PAXIL [Concomitant]
     Indication: ABDOMINAL PAIN UPPER
     Dosage: UNK
     Dates: start: 20071017

REACTIONS (5)
  - BILIARY DYSKINESIA [None]
  - CHOLECYSTITIS CHRONIC [None]
  - VOMITING [None]
  - ABDOMINAL PAIN UPPER [None]
  - NAUSEA [None]
